FAERS Safety Report 5621553-1 (Version None)
Quarter: 2008Q1

REPORT INFORMATION
  Report Type: 
  Country: None (occurrence: None)
  Receive Date: 20080114
  Receipt Date: 20070601
  Transmission Date: 20080703
  Serious: Yes (Hospitalization)
  Sender: FDA-Public Use
  Company Number: A03200703568

PATIENT
  Age: 54 Year
  Sex: Male

DRUGS (5)
  1. PLAVIX [Suspect]
     Indication: STENT PLACEMENT
     Dosage: 75 MG QD - ORAL
     Route: 048
     Dates: start: 20040101
  2. ISOSORBIDE DINITRATE [Concomitant]
  3. ATENOLOL [Concomitant]
  4. RANITIDINE HYDROCHLORIDE [Concomitant]
  5. INSULIN [Concomitant]

REACTIONS (3)
  - GASTROINTESTINAL HAEMORRHAGE [None]
  - INFECTION [None]
  - MYALGIA [None]
